FAERS Safety Report 8066680 (Version 3)
Quarter: 2014Q1

REPORT INFORMATION
  Report Type: Report from Study
  Country: KR (occurrence: KR)
  Receive Date: 20110803
  Receipt Date: 20140219
  Transmission Date: 20141002
  Serious: Yes (Hospitalization)
  Sender: FDA-Public Use
  Company Number: KR-JNJFOC-20110708544

PATIENT
  Age: 49 Year
  Sex: Male
  Weight: 56 kg

DRUGS (5)
  1. REMICADE [Suspect]
     Indication: COLITIS ULCERATIVE
     Route: 042
     Dates: start: 20110202
  2. HUMALOG MIX [Concomitant]
     Indication: DIABETES MELLITUS
     Dosage: MIX 25
     Route: 058
     Dates: start: 20110329
  3. FEROBA YOU SR [Concomitant]
     Indication: PROPHYLAXIS
     Route: 048
     Dates: start: 20110208
  4. SOLONDO [Concomitant]
     Indication: CROHN^S DISEASE
     Route: 048
     Dates: start: 20110303, end: 20110309
  5. SALOFALK [Concomitant]
     Indication: CROHN^S DISEASE
     Route: 048
     Dates: start: 20110208, end: 20110324

REACTIONS (1)
  - Cytomegalovirus infection [Recovered/Resolved]
